FAERS Safety Report 15838367 (Version 1)
Quarter: 2019Q1

REPORT INFORMATION
  Report Type: Report from Study
  Country: ES (occurrence: ES)
  Receive Date: 20190117
  Receipt Date: 20190117
  Transmission Date: 20190417
  Serious: Yes (Hospitalization, Other)
  Sender: FDA-Public Use
  Company Number: ES-ASPEN-GLO2019ES000394

PATIENT
  Age: 6 Year
  Sex: Female
  Weight: 39.6 kg

DRUGS (4)
  1. CITARABINA [Suspect]
     Active Substance: CYTARABINE
     Indication: ACUTE LYMPHOCYTIC LEUKAEMIA
     Dosage: 720 MG
     Route: 042
     Dates: start: 20170704, end: 20170714
  2. ZOVIRAX [Concomitant]
     Active Substance: ACYCLOVIR
     Indication: ACUTE LYMPHOCYTIC LEUKAEMIA
     Dosage: 240 MG, TID
     Route: 048
     Dates: start: 20160929
  3. TIOGUANINE [Suspect]
     Active Substance: THIOGUANINE ANHYDROUS
     Indication: ACUTE LYMPHOCYTIC LEUKAEMIA
     Dosage: 58 MG, QD
     Route: 048
     Dates: start: 20170704, end: 20170716
  4. SEPTRIN PAEDIATRIC [Concomitant]
     Active Substance: SULFAMETHOXAZOLE\TRIMETHOPRIM
     Indication: ACUTE LYMPHOCYTIC LEUKAEMIA
     Dosage: 8 ML, BID
     Route: 048
     Dates: start: 20160929

REACTIONS (2)
  - Haematochezia [Recovered/Resolved]
  - Thrombocytopenia [Recovered/Resolved]

NARRATIVE: CASE EVENT DATE: 20170718
